APPROVED DRUG PRODUCT: HYDRALAZINE HYDROCHLORIDE
Active Ingredient: HYDRALAZINE HYDROCHLORIDE
Strength: 20MG/ML
Dosage Form/Route: INJECTABLE;INJECTION
Application: A088517 | Product #001
Applicant: SOLOPAK LABORATORIES INC
Approved: Aug 22, 1985 | RLD: No | RS: No | Type: DISCN